FAERS Safety Report 5519974-0 (Version None)
Quarter: 2007Q4

REPORT INFORMATION
  Report Type: 
  Country: None (occurrence: None)
  Receive Date: 20071116
  Receipt Date: 20070919
  Transmission Date: 20080405
  Serious: No
  Sender: FDA-Public Use
  Company Number: US-BRISTOL-MYERS SQUIBB COMPANY-13915665

PATIENT
  Age: 63 Year
  Sex: Female
  Weight: 68 kg

DRUGS (5)
  1. QUESTRAN [Suspect]
     Dosage: 1 PACKET DAILY TILL 20 YEARS AGO TO 16-SEP-2007 AND 1 PACK EVERY OTHER DAY FROM 17-SEP-2007 ONWARDS.
     Route: 048
     Dates: end: 20070916
  2. VITAMIN K [Concomitant]
  3. SYNTHROID [Concomitant]
  4. FOSAMAX [Concomitant]
  5. NEXIUM [Concomitant]

REACTIONS (1)
  - CONSTIPATION [None]
